FAERS Safety Report 9815275 (Version 1)
Quarter: 2014Q1

REPORT INFORMATION
  Report Type: Report from Study
  Country: CA (occurrence: CA)
  Receive Date: 20140114
  Receipt Date: 20140114
  Transmission Date: 20141002
  Serious: Yes (Other)
  Sender: FDA-Public Use
  Company Number: CA-JNJFOC-20140104747

PATIENT
  Age: 74 Year
  Sex: Female
  Weight: 38.7 kg

DRUGS (15)
  1. REMICADE [Suspect]
     Indication: CROHN^S DISEASE
     Route: 042
     Dates: start: 200911
  2. VITAMIN B12 [Concomitant]
     Route: 065
  3. AMITRIPTYLINE [Concomitant]
     Route: 065
  4. BUSCOPAN [Concomitant]
     Route: 065
  5. ACTONEL [Concomitant]
     Route: 065
  6. CHAMPIX [Concomitant]
     Route: 065
  7. BACLOFEN [Concomitant]
     Route: 065
  8. VITAMIN D [Concomitant]
     Route: 065
  9. MEDROL [Concomitant]
     Route: 065
  10. BENTYL [Concomitant]
     Route: 065
  11. ENTOCORT [Concomitant]
     Route: 065
  12. CODEINE [Concomitant]
     Route: 065
  13. COVERSYL [Concomitant]
     Route: 065
  14. POTASSIUM [Concomitant]
     Route: 065
  15. CALCIUM [Concomitant]
     Route: 065

REACTIONS (1)
  - Fungal infection [Unknown]
